FAERS Safety Report 18695487 (Version 1)
Quarter: 2021Q1

REPORT INFORMATION
  Report Type: Spontaneous
  Country: US (occurrence: US)
  Receive Date: 20210103
  Receipt Date: 20210103
  Transmission Date: 20210419
  Serious: Yes (Other)
  Sender: FDA-Public Use
  Company Number: None

PATIENT
  Sex: Female

DRUGS (3)
  1. ATORVASTATIN 10MG [Concomitant]
     Active Substance: ATORVASTATIN
  2. LISINOPRIL 10MG [Concomitant]
     Active Substance: LISINOPRIL
  3. NUPLAZID [Suspect]
     Active Substance: PIMAVANSERIN TARTRATE
     Indication: PARKINSON^S DISEASE
     Route: 048
     Dates: start: 20200731

REACTIONS (2)
  - Nausea [None]
  - Therapy interrupted [None]
